FAERS Safety Report 17815694 (Version 1)
Quarter: 2020Q2

REPORT INFORMATION
  Report Type: Spontaneous
  Country: US (occurrence: US)
  Receive Date: 20200522
  Receipt Date: 20200522
  Transmission Date: 20200714
  Serious: Yes (Hospitalization, Disabling)
  Sender: FDA-Public Use
  Company Number: None

PATIENT
  Age: 27 Year
  Sex: Female
  Weight: 60.3 kg

DRUGS (1)
  1. MIRENA [Suspect]
     Active Substance: LEVONORGESTREL
     Dates: start: 20100214, end: 20120214

REACTIONS (4)
  - Dysmenorrhoea [None]
  - Complication of device removal [None]
  - Fluid retention [None]
  - Swelling [None]

NARRATIVE: CASE EVENT DATE: 20100214
